FAERS Safety Report 13315364 (Version 1)
Quarter: 2017Q1

REPORT INFORMATION
  Report Type: Spontaneous
  Country: US (occurrence: US)
  Receive Date: 20170309
  Receipt Date: 20170309
  Transmission Date: 20170428
  Serious: No
  Sender: FDA-Public Use
  Company Number: US-TEVA-746187ACC

PATIENT
  Age: 48 Year
  Sex: Female

DRUGS (9)
  1. COPAXONE [Suspect]
     Active Substance: GLATIRAMER ACETATE
     Route: 058
     Dates: start: 20131004
  2. ENALAPRIL [Concomitant]
     Active Substance: ENALAPRIL
  3. NARCAN [Concomitant]
     Active Substance: NALOXONE HYDROCHLORIDE
  4. DIAZEPAM. [Concomitant]
     Active Substance: DIAZEPAM
  5. NEURONTIN [Concomitant]
     Active Substance: GABAPENTIN
  6. TORSEMIDE. [Concomitant]
     Active Substance: TORSEMIDE
  7. COPAXONE [Suspect]
     Active Substance: GLATIRAMER ACETATE
     Indication: MULTIPLE SCLEROSIS
     Route: 058
  8. TRAMADOL. [Concomitant]
     Active Substance: TRAMADOL
  9. ANAPROX [Concomitant]
     Active Substance: NAPROXEN SODIUM

REACTIONS (1)
  - Dyspnoea [Unknown]

NARRATIVE: CASE EVENT DATE: 201701
